FAERS Safety Report 4354845-7 (Version None)
Quarter: 2004Q2

REPORT INFORMATION
  Report Type: 
  Country: None (occurrence: None)
  Receive Date: 20040507
  Receipt Date: 20040426
  Transmission Date: 20050107
  Serious: Yes (Other)
  Sender: FDA-Public Use
  Company Number: GB-GLAXOSMITHKLINE-B0331105A

PATIENT
  Age: 40 Year
  Sex: Female

DRUGS (4)
  1. LAMICTAL [Suspect]
     Dosage: 150MG PER DAY
  2. PIPORTIL [Concomitant]
     Dosage: 50MG EVERY TWO WEEKS
  3. OLANZAPINE [Concomitant]
     Dosage: 15MG PER DAY
  4. EPILIM CHRONO [Concomitant]
     Dosage: 300MG IN THE MORNING

REACTIONS (6)
  - ERYTHEMA [None]
  - FATIGUE [None]
  - PHOTOSENSITIVITY REACTION [None]
  - SKIN BURNING SENSATION [None]
  - VISION BLURRED [None]
  - VISUAL ACUITY REDUCED [None]
